FAERS Safety Report 18727286 (Version 1)
Quarter: 2021Q1

REPORT INFORMATION
  Report Type: Spontaneous
  Country: US (occurrence: US)
  Receive Date: 20210111
  Receipt Date: 20210111
  Transmission Date: 20210419
  Serious: No
  Sender: FDA-Public Use
  Company Number: US-ROCHE-2701126

PATIENT
  Sex: Male

DRUGS (2)
  1. KOGENATE [Concomitant]
     Active Substance: ANTIHEMOPHILIC FACTOR, HUMAN RECOMBINANT
     Indication: FACTOR VIII DEFICIENCY
     Dosage: INFUSE ~ 4000 UNITS (+/?10%) IV PUSH EVERY 12 HOURS AS NEEDED
     Route: 042
     Dates: start: 201801
  2. HEMLIBRA [Suspect]
     Active Substance: EMICIZUMAB-KXWH
     Indication: PRODUCT USED FOR UNKNOWN INDICATION
     Dosage: 300 MG (2ML) 150 MG/ML VIAL
     Route: 058
     Dates: start: 201908

REACTIONS (1)
  - Epistaxis [Unknown]
